FAERS Safety Report 10410652 (Version 2)
Quarter: 2014Q3

REPORT INFORMATION
  Report Type: Spontaneous
  Country: US (occurrence: US)
  Receive Date: 20140826
  Receipt Date: 20140826
  Transmission Date: 20150326
  Serious: Yes (Hospitalization, Other)
  Sender: FDA-Public Use
  Company Number: US-009507513-2010SP045138

PATIENT
  Sex: Female
  Weight: 97.52 kg

DRUGS (3)
  1. REGLAN [Suspect]
     Active Substance: METOCLOPRAMIDE HYDROCHLORIDE
     Indication: IRRITABLE BOWEL SYNDROME
     Dates: start: 20051005, end: 20051007
  2. NUVARING [Suspect]
     Active Substance: ETHINYL ESTRADIOL\ETONOGESTREL
     Dates: start: 200602
  3. NUVARING [Suspect]
     Active Substance: ETHINYL ESTRADIOL\ETONOGESTREL
     Indication: CONTRACEPTION
     Route: 067
     Dates: start: 2004, end: 20070110

REACTIONS (17)
  - Ovarian cyst [Recovered/Resolved]
  - Urinary tract infection [Unknown]
  - Haemoptysis [Unknown]
  - Dystonia [Recovered/Resolved]
  - Uterine polyp [Recovered/Resolved]
  - Pulmonary embolism [Unknown]
  - Pulmonary infarction [Unknown]
  - Liver function test abnormal [Unknown]
  - Occult blood positive [Unknown]
  - Band neutrophil count increased [Unknown]
  - Deep vein thrombosis [Unknown]
  - Herpes simplex [Unknown]
  - Inflammatory bowel disease [Unknown]
  - Adverse drug reaction [Recovered/Resolved]
  - Pulmonary mass [Unknown]
  - Haematochezia [Recovered/Resolved]
  - Lung infiltration [Unknown]

NARRATIVE: CASE EVENT DATE: 200401
